FAERS Safety Report 4709612-9 (Version None)
Quarter: 2005Q3

REPORT INFORMATION
  Report Type: 
  Country: None (occurrence: None)
  Receive Date: 20050705
  Receipt Date: 20050621
  Transmission Date: 20060218
  Serious: Yes (Hospitalization)
  Sender: FDA-Public Use
  Company Number: B0384309A

PATIENT
  Age: 52 Year
  Sex: Female

DRUGS (12)
  1. LITHIUM CARBONATE [Suspect]
     Indication: BIPOLAR DISORDER
     Dosage: 600 MG PER DAY
  2. SULPIRIDE (FORMULATION UNKNOWN) (SULPIRIDE) [Suspect]
     Dosage: SEE DOSAGE TEXT
  3. FLUOXETINE [Suspect]
     Dosage: 20 MG / PER DAY
  4. PROPPRANOLOL HYDROCHLORIDE [Concomitant]
  5. LORAZEPAM [Concomitant]
  6. ZOTEPINE [Concomitant]
  7. ESTAZOLAM [Concomitant]
  8. DIPYRIDAMOLE [Concomitant]
  9. ASPIRIN [Concomitant]
  10. CONJUGATED ESTROGENS [Concomitant]
  11. BENZBROMARONE [Concomitant]
  12. FLUVASTATIN SODIUM [Concomitant]

REACTIONS (36)
  - ASTHENIA [None]
  - BIPOLAR II DISORDER [None]
  - BLOOD CHLORIDE INCREASED [None]
  - BLOOD CREATINE PHOSPHOKINASE INCREASED [None]
  - BLOOD CREATININE ABNORMAL [None]
  - BLOOD OSMOLARITY ABNORMAL [None]
  - BLOOD SODIUM INCREASED [None]
  - COGNITIVE DISORDER [None]
  - CONSTRICTED AFFECT [None]
  - COORDINATION ABNORMAL [None]
  - DEHYDRATION [None]
  - DELIRIUM [None]
  - DEPRESSED LEVEL OF CONSCIOUSNESS [None]
  - DISORIENTATION [None]
  - DISTURBANCE IN ATTENTION [None]
  - DYSARTHRIA [None]
  - EXTRAPYRAMIDAL DISORDER [None]
  - FEELING GUILTY [None]
  - HALLUCINATIONS, MIXED [None]
  - HYPERLIPIDAEMIA [None]
  - HYPERURICAEMIA [None]
  - IDEAS OF REFERENCE [None]
  - MASKED FACIES [None]
  - MEMORY IMPAIRMENT [None]
  - MENTAL IMPAIRMENT [None]
  - NEPHROGENIC DIABETES INSIPIDUS [None]
  - POLYDIPSIA [None]
  - POLYURIA [None]
  - PSYCHOMOTOR RETARDATION [None]
  - SELF ESTEEM DECREASED [None]
  - SLEEP DISORDER [None]
  - SOMNOLENCE [None]
  - SPEECH DISORDER [None]
  - SUICIDE ATTEMPT [None]
  - THERAPEUTIC AGENT TOXICITY [None]
  - TREMOR [None]
